FAERS Safety Report 7734572-6 (Version None)
Quarter: 2011Q3

REPORT INFORMATION
  Report Type: 
  Country: None (occurrence: None)
  Receive Date: 20110907
  Receipt Date: 20110906
  Transmission Date: 20111222
  Serious: Yes (Death, Hospitalization)
  Sender: FDA-Public Use
  Company Number: DE-GLAXOSMITHKLINE-D0072350A

PATIENT
  Sex: Male
  Weight: 68 kg

DRUGS (3)
  1. ONDANSETRON [Concomitant]
     Indication: VOMITING
     Dosage: 8MG WEEKLY
     Route: 042
     Dates: start: 20110720, end: 20110803
  2. DEXAMETHASONE [Concomitant]
     Indication: VOMITING
     Dosage: 4MG WEEKLY
     Route: 048
     Dates: start: 20110720, end: 20110803
  3. HYCAMTIN [Suspect]
     Indication: BRONCHIAL CARCINOMA
     Dosage: 4MGM2 WEEKLY
     Route: 042
     Dates: start: 20110720, end: 20110803

REACTIONS (4)
  - RESUSCITATION [None]
  - CARDIOVASCULAR INSUFFICIENCY [None]
  - VENTRICULAR TACHYCARDIA [None]
  - ANGINA PECTORIS [None]
